FAERS Safety Report 6167700-7 (Version None)
Quarter: 2009Q2

REPORT INFORMATION
  Report Type: 
  Country: None (occurrence: None)
  Receive Date: 20090424
  Receipt Date: 20090414
  Transmission Date: 20091009
  Serious: Yes (Disabling, Other)
  Sender: FDA-Public Use
  Company Number: US-MERCK-0901USA03024

PATIENT
  Age: 47 Year
  Sex: Female

DRUGS (1)
  1. FOSAMAX [Suspect]
     Indication: OSTEOPOROSIS
     Route: 048

REACTIONS (14)
  - ANXIETY [None]
  - BONE DISORDER [None]
  - DENTAL CARIES [None]
  - DEPRESSION [None]
  - EDENTULOUS [None]
  - FEELING ABNORMAL [None]
  - FRACTURE [None]
  - HYPERTENSION [None]
  - JAW DISORDER [None]
  - JOINT INJURY [None]
  - OSTEOMYELITIS [None]
  - OSTEONECROSIS [None]
  - PARKINSON'S DISEASE [None]
  - TRISMUS [None]
